FAERS Safety Report 11559849 (Version 3)
Quarter: 2015Q4

REPORT INFORMATION
  Report Type: Spontaneous
  Country: US (occurrence: US)
  Receive Date: 20150928
  Receipt Date: 20151215
  Transmission Date: 20160304
  Serious: No
  Sender: FDA-Public Use
  Company Number: US-BAYER-2015-431452

PATIENT
  Age: 47 Year
  Sex: Female

DRUGS (2)
  1. MIRENA [Suspect]
     Active Substance: LEVONORGESTREL
     Indication: MENORRHAGIA
  2. MIRENA [Suspect]
     Active Substance: LEVONORGESTREL
     Indication: CONTRACEPTION
     Dosage: UNK
     Route: 015
     Dates: start: 20150915, end: 20150915

REACTIONS (4)
  - Device expulsion [None]
  - Device difficult to use [None]
  - Abdominal pain lower [None]
  - Menorrhagia [None]

NARRATIVE: CASE EVENT DATE: 2015
